FAERS Safety Report 21289543 (Version 1)
Quarter: 2022Q3

REPORT INFORMATION
  Report Type: Spontaneous
  Country: US (occurrence: US)
  Receive Date: 20220902
  Receipt Date: 20220902
  Transmission Date: 20221026
  Serious: No
  Sender: FDA-Public Use
  Company Number: US-BRISTOL-MYERS SQUIBB COMPANY-2022-099268

PATIENT
  Age: 83 Year
  Sex: Male
  Weight: 78.02 kg

DRUGS (1)
  1. POMALYST [Suspect]
     Active Substance: POMALIDOMIDE
     Indication: Plasma cell myeloma
     Dosage: 1-21 Q28 DAYS
     Route: 048
     Dates: start: 20220824

REACTIONS (1)
  - Fatigue [Not Recovered/Not Resolved]
